FAERS Safety Report 8851987 (Version 1)
Quarter: 2012Q4

REPORT INFORMATION
  Report Type: Spontaneous
  Country: GB (occurrence: None)
  Receive Date: 20121017
  Receipt Date: 20121017
  Transmission Date: 20130627
  Serious: Yes (Other)
  Sender: FDA-Public Use
  Company Number: FK201203084

PATIENT
  Age: 64 Year
  Sex: Female
  Weight: 76 kg

DRUGS (4)
  1. IRINOTECAN [Suspect]
     Indication: CHEMOTHERAPY
  2. FLUOROURACIL [Suspect]
     Indication: CHEMOTHERAPY
  3. LEUCOVORIN CALCIUM [Suspect]
     Indication: CHEMOTHERAPY
  4. ELOXATIN [Suspect]
     Indication: CHEMOTHERAPY
     Dates: start: 20080220, end: 20080319

REACTIONS (7)
  - Febrile neutropenia [None]
  - Laryngospasm [None]
  - Dyspnoea [None]
  - Constipation [None]
  - Dyspepsia [None]
  - Neuropathy peripheral [None]
  - Lethargy [None]
